FAERS Safety Report 23202716 (Version 1)
Quarter: 2023Q4

REPORT INFORMATION
  Report Type: Spontaneous
  Country: US (occurrence: US)
  Receive Date: 20231120
  Receipt Date: 20231120
  Transmission Date: 20240110
  Serious: No
  Sender: FDA-Public Use
  Company Number: US-TEVA-2023-US-2945641

PATIENT
  Age: 63 Year
  Sex: Female

DRUGS (1)
  1. CLONAZEPAM [Suspect]
     Active Substance: CLONAZEPAM
     Indication: Anxiety
     Dosage: STRENGTH: 1 MG
     Dates: start: 20231024, end: 2023

REACTIONS (6)
  - Heart rate increased [Unknown]
  - Swollen tongue [Unknown]
  - Thinking abnormal [Unknown]
  - Visual impairment [Unknown]
  - Vision blurred [Unknown]
  - Impaired driving ability [Unknown]

NARRATIVE: CASE EVENT DATE: 20231001
